FAERS Safety Report 4837632-2 (Version None)
Quarter: 2005Q4

REPORT INFORMATION
  Report Type: 
  Country: None (occurrence: None)
  Receive Date: 20051128
  Receipt Date: 20051115
  Transmission Date: 20060501
  Serious: Yes (Hospitalization)
  Sender: FDA-Public Use
  Company Number: 2005SE06592

PATIENT
  Age: 1022 Month
  Sex: Female

DRUGS (4)
  1. ATACAND [Suspect]
     Route: 048
     Dates: start: 20050906
  2. TRANDATE [Suspect]
     Indication: HYPERTENSION
     Route: 065
     Dates: start: 20051013
  3. SELEXID [Concomitant]
     Indication: URINARY TRACT INFECTION
     Route: 065
     Dates: start: 20051001
  4. TRIMETOPRIM-SULFA [Concomitant]
     Indication: URINARY TRACT INFECTION
     Route: 065
     Dates: start: 20051001

REACTIONS (4)
  - BRADYCARDIA [None]
  - CONDITION AGGRAVATED [None]
  - HYPOTENSION [None]
  - RENAL FAILURE [None]
